FAERS Safety Report 6156973-2 (Version None)
Quarter: 2009Q2

REPORT INFORMATION
  Report Type: 
  Country: None (occurrence: None)
  Receive Date: 20090413
  Receipt Date: 20090413
  Transmission Date: 20091009
  Serious: Yes (Other)
  Sender: FDA-Public Use
  Company Number: None

PATIENT
  Age: 73 Year
  Sex: Male
  Weight: 89.8122 kg

DRUGS (1)
  1. JANUVIA [Suspect]
     Indication: DIABETES MELLITUS
     Dosage: ONE TABLET EVERY MORNING PO (DURATION: A WEEK AND A HALF)
     Route: 048
     Dates: start: 20090401, end: 20090412

REACTIONS (1)
  - HYPERSENSITIVITY [None]
